FAERS Safety Report 4362351-9 (Version None)
Quarter: 2004Q2

REPORT INFORMATION
  Report Type: 
  Country: None (occurrence: None)
  Receive Date: 20040518
  Receipt Date: 20040503
  Transmission Date: 20050107
  Serious: Yes (Hospitalization, Other)
  Sender: FDA-Public Use
  Company Number: 701289

PATIENT
  Age: 57 Year
  Sex: Male
  Weight: 87.5442 kg

DRUGS (4)
  1. AMEVIVE [Suspect]
     Indication: PSORIASIS
     Dosage: 7.5 MG QW IV
     Route: 042
     Dates: start: 20030930, end: 20031029
  2. CLARITHROMYCIN [Concomitant]
  3. IBUPROFEN [Concomitant]
  4. AVAPRO [Concomitant]

REACTIONS (11)
  - CONJUNCTIVITIS INFECTIVE [None]
  - EOSINOPHILIC PNEUMONIA [None]
  - HERPES SIMPLEX [None]
  - IMMUNOSUPPRESSION [None]
  - LUNG NEOPLASM [None]
  - NIGHT SWEATS [None]
  - PLEURITIC PAIN [None]
  - RESPIRATORY FAILURE [None]
  - UPPER RESPIRATORY TRACT INFECTION [None]
  - WEIGHT DECREASED [None]
  - WHEEZING [None]
